FAERS Safety Report 13347252 (Version 1)
Quarter: 2017Q1

REPORT INFORMATION
  Report Type: Spontaneous
  Country: FR (occurrence: FR)
  Receive Date: 20170317
  Receipt Date: 20170317
  Transmission Date: 20170428
  Serious: Yes (Other)
  Sender: FDA-Public Use
  Company Number: FR-BAYER-2017-047496

PATIENT
  Age: 56 Year
  Sex: Male

DRUGS (4)
  1. FOLFIRI [Concomitant]
     Active Substance: FLUOROURACIL\IRINOTECAN\LEUCOVORIN
  2. STIVARGA [Suspect]
     Active Substance: REGORAFENIB
     Indication: METASTASES TO LIVER
  3. XELODA [Concomitant]
     Active Substance: CAPECITABINE
  4. STIVARGA [Suspect]
     Active Substance: REGORAFENIB
     Indication: RECTAL ADENOCARCINOMA
     Dosage: 160 MG, QD
     Dates: start: 201302

REACTIONS (9)
  - Metastases to liver [None]
  - Carcinoembryonic antigen increased [None]
  - Rectal adenocarcinoma [None]
  - Diarrhoea [None]
  - Skin mass [None]
  - Retroperitoneal lymphadenopathy [None]
  - Palmar-plantar erythrodysaesthesia syndrome [None]
  - Asthenia [None]
  - Abdominal pain upper [None]

NARRATIVE: CASE EVENT DATE: 2013
